FAERS Safety Report 6507185-1 (Version None)
Quarter: 2009Q4

REPORT INFORMATION
  Report Type: 
  Country: None (occurrence: None)
  Receive Date: 20091216
  Receipt Date: 20091203
  Transmission Date: 20100525
  Serious: Yes (Disabling)
  Sender: FDA-Public Use
  Company Number: 447102

PATIENT
  Sex: 0

DRUGS (1)
  1. BUPIVACAINE HCL [Suspect]
     Indication: DRUG USE FOR UNKNOWN INDICATION
     Dosage: INJECTION

REACTIONS (9)
  - ANXIETY [None]
  - CHONDROLYSIS [None]
  - ECONOMIC PROBLEM [None]
  - EMOTIONAL DISTRESS [None]
  - INJURY [None]
  - MEDICAL DEVICE COMPLICATION [None]
  - PAIN [None]
  - PRODUCT CONTAMINATION [None]
  - SOCIAL PROBLEM [None]
